FAERS Safety Report 9296364 (Version 1)
Quarter: 2013Q2

REPORT INFORMATION
  Report Type: Spontaneous
  Country: BR (occurrence: BR)
  Receive Date: 20130517
  Receipt Date: 20130517
  Transmission Date: 20140414
  Serious: Yes (Other)
  Sender: FDA-Public Use
  Company Number: BR-BRISTOL-MYERS SQUIBB COMPANY-18890335

PATIENT
  Age: 43 Year
  Sex: Female
  Weight: 58 kg

DRUGS (5)
  1. REYATAZ CAPS 300 MG [Suspect]
     Indication: HIV INFECTION
     Dosage: 1 DF:TAKING ONE CAPSULE DAILY?3 YEARS AGO
     Route: 048
  2. OMEPRAZOLE [Interacting]
  3. NORVIR [Suspect]
     Indication: HIV INFECTION
  4. LAMIVUDINE [Suspect]
     Indication: HIV INFECTION
  5. TENOFOVIR [Suspect]
     Indication: HIV INFECTION

REACTIONS (7)
  - Blood bilirubin increased [Unknown]
  - Arrhythmia [Unknown]
  - Helicobacter infection [Unknown]
  - Constipation [Unknown]
  - Abdominal pain upper [Unknown]
  - Weight increased [Unknown]
  - Drug interaction [Unknown]
